FAERS Safety Report 25791105 (Version 1)
Quarter: 2025Q3

REPORT INFORMATION
  Report Type: Spontaneous
  Country: US (occurrence: US)
  Receive Date: 20250911
  Receipt Date: 20250911
  Transmission Date: 20251021
  Serious: No
  Sender: Kenvue
  Company Number: US-KENVUE-20250806957

PATIENT
  Sex: Female

DRUGS (16)
  1. IMODIUM [Suspect]
     Active Substance: LOPERAMIDE HYDROCHLORIDE
     Indication: Diarrhoea
     Route: 065
     Dates: start: 2025
  2. TYLENOL [Concomitant]
     Active Substance: ACETAMINOPHEN
     Indication: Headache
     Route: 065
  3. ORENITRAM [Concomitant]
     Active Substance: TREPROSTINIL
     Indication: Pulmonary arterial hypertension
     Dosage: 0.375 MILLIGRAM, THRICE A DAY
     Route: 048
     Dates: start: 202504, end: 2025
  4. ORENITRAM [Concomitant]
     Active Substance: TREPROSTINIL
     Dosage: 1 MILLIGRAM, THRICE A DAY
     Route: 048
     Dates: start: 2025, end: 2025
  5. ORENITRAM [Concomitant]
     Active Substance: TREPROSTINIL
     Dosage: 1.75 MILLIGRAM, (1 TABLET OF 1 MG AND 3 TABLETS OF 0.25 MG) THRICE A DAY
     Route: 048
     Dates: start: 2025, end: 2025
  6. ORENITRAM [Concomitant]
     Active Substance: TREPROSTINIL
     Dosage: 2 MILLIGRAM, THRICE A DAY
     Route: 048
     Dates: start: 2025, end: 202507
  7. ORENITRAM [Concomitant]
     Active Substance: TREPROSTINIL
     Dosage: 2.25 MILLIGRAM, (2 TABLET OF 1 MG AND 1 TABLETS OF 0.25 MG) THRICE A DAY
     Route: 048
     Dates: start: 202507, end: 2025
  8. ORENITRAM [Concomitant]
     Active Substance: TREPROSTINIL
     Dosage: 3 MILLIGRAM, THRICE A DAY
     Route: 048
     Dates: start: 2025
  9. ORENITRAM [Concomitant]
     Active Substance: TREPROSTINIL
     Route: 048
     Dates: start: 20250404
  10. ORENITRAM [Concomitant]
     Active Substance: TREPROSTINIL
     Dosage: 1.5 MILLIGRAM, THRICE A DAY
     Route: 048
     Dates: start: 2025, end: 2025
  11. PREDNISONE [Concomitant]
     Active Substance: PREDNISONE
     Indication: Product used for unknown indication
     Route: 065
  12. PREDNISONE [Concomitant]
     Active Substance: PREDNISONE
     Route: 065
  13. GABAPENTIN [Concomitant]
     Active Substance: GABAPENTIN
     Indication: Product used for unknown indication
     Route: 065
  14. MYCOPHENOLIC ACID [Concomitant]
     Active Substance: MYCOPHENOLIC ACID
     Indication: Product used for unknown indication
     Dosage: 1000 MILLIGRAM, TWICE A DAY (DOSE HAD BEEN INCREASED TO 1000 MG TWICE DAILY)
     Route: 065
     Dates: start: 2025
  15. MYCOPHENOLIC ACID [Concomitant]
     Active Substance: MYCOPHENOLIC ACID
     Route: 065
  16. OFEV [Concomitant]
     Active Substance: NINTEDANIB
     Indication: Product used for unknown indication
     Route: 065

REACTIONS (1)
  - Constipation [Unknown]

NARRATIVE: CASE EVENT DATE: 20250101
